FAERS Safety Report 5447260-6 (Version None)
Quarter: 2007Q3

REPORT INFORMATION
  Report Type: 
  Country: None (occurrence: None)
  Receive Date: 20070905
  Receipt Date: 20070905
  Transmission Date: 20080115
  Serious: No
  Sender: FDA-Public Use
  Company Number: None

PATIENT
  Age: 1 Day
  Sex: Female
  Weight: 3.4 kg

DRUGS (2)
  1. AQUAMEPHYTON [Suspect]
     Dosage: 10MG  ONE  IM
     Route: 030
     Dates: start: 20070315, end: 20070315
  2. AQUAMEPHYTON [Suspect]

REACTIONS (2)
  - DRUG DISPENSING ERROR [None]
  - MEDICATION ERROR [None]
